FAERS Safety Report 15812378 (Version 1)
Quarter: 2019Q1

REPORT INFORMATION
  Report Type: Spontaneous
  Country: US (occurrence: US)
  Receive Date: 20190111
  Receipt Date: 20190111
  Transmission Date: 20190417
  Serious: Yes (Hospitalization, Other)
  Sender: FDA-Public Use
  Company Number: US-IBSA PHARMA-TIR-2019-0001

PATIENT
  Age: 41 Year
  Sex: Male

DRUGS (1)
  1. LEVOTHYROXINE. [Suspect]
     Active Substance: LEVOTHYROXINE
     Indication: PRODUCT USED FOR UNKNOWN INDICATION

REACTIONS (4)
  - Drug intolerance [Recovered/Resolved]
  - Feeling abnormal [Recovered/Resolved]
  - Myopathy endocrine [Recovered/Resolved]
  - Rhabdomyolysis [Recovered/Resolved]
